FAERS Safety Report 15049514 (Version 1)
Quarter: 2018Q2

REPORT INFORMATION
  Report Type: Spontaneous
  Country: CA (occurrence: CA)
  Receive Date: 20180622
  Receipt Date: 20180622
  Transmission Date: 20180711
  Serious: Yes (Other)
  Sender: FDA-Public Use
  Company Number: CA-TEVA-2018-CA-908576

PATIENT
  Age: 68 Year
  Sex: Female

DRUGS (5)
  1. COVERSYL [Concomitant]
     Active Substance: PERINDOPRIL
  2. EZETIMIBE. [Suspect]
     Active Substance: EZETIMIBE
     Indication: HYPERCHOLESTEROLAEMIA
     Route: 048
  3. BISOPROLOL [Concomitant]
     Active Substance: BISOPROLOL
  4. NEXIUM [Concomitant]
     Active Substance: ESOMEPRAZOLE MAGNESIUM
  5. PRAVASTATIN SODIUM. [Concomitant]
     Active Substance: PRAVASTATIN SODIUM

REACTIONS (2)
  - Eye haemorrhage [Recovered/Resolved]
  - Palpitations [Recovered/Resolved]
